FAERS Safety Report 20003304 (Version 1)
Quarter: 2021Q4

REPORT INFORMATION
  Report Type: Spontaneous
  Country: FR (occurrence: FR)
  Receive Date: 20211027
  Receipt Date: 20211027
  Transmission Date: 20220303
  Serious: Yes (Hospitalization, Other)
  Sender: FDA-Public Use
  Company Number: None

PATIENT
  Age: 24 Year
  Sex: Male
  Weight: 62 kg

DRUGS (7)
  1. LYRICA [Suspect]
     Active Substance: PREGABALIN
     Dosage: 1500 MG, DAILY (1500 MG/DAILY VERSUS 300MG DAILY PRESCRIBED)
     Route: 048
     Dates: start: 2016
  2. LYRICA [Suspect]
     Active Substance: PREGABALIN
     Dosage: 300 MG, DAILY (1500 MG/DAILY VERSUS 300MG DAILY PRESCRIBED)
     Route: 048
  3. COCAINE [Suspect]
     Active Substance: COCAINE
     Dosage: UNK
     Route: 055
     Dates: start: 2018
  4. RIVOTRIL [Suspect]
     Active Substance: CLONAZEPAM
     Dosage: 10 MG, DAILY (10 MG DAILY VERSUS PRESCRIPTION OF 2MG TWICE DAILY IE 4 MG)
     Route: 048
     Dates: start: 2011
  5. RIVOTRIL [Suspect]
     Active Substance: CLONAZEPAM
     Dosage: 2 MG, 2X/DAY (10 MG DAILY VERSUS PRESCRIPTION OF 2MG TWICE DAILY IE 4 MG)
     Route: 048
  6. CANNABIS SATIVA SUBSP. INDICA TOP [Suspect]
     Active Substance: CANNABIS SATIVA SUBSP. INDICA TOP
     Dosage: 4 TO 8 JOINTS/DAY 4 EUROS/DAY
     Route: 055
     Dates: start: 2011
  7. COCAINE [Concomitant]
     Active Substance: COCAINE
     Dosage: FROM 0.5 TO 1G/DAY 20 EUROS /DAY
     Route: 045
     Dates: start: 2018

REACTIONS (3)
  - Overdose [Unknown]
  - Substance use disorder [Recovering/Resolving]
  - Drug diversion [Recovering/Resolving]

NARRATIVE: CASE EVENT DATE: 20160101
